FAERS Safety Report 6822342-2 (Version None)
Quarter: 2010Q3

REPORT INFORMATION
  Report Type: 
  Country: None (occurrence: None)
  Receive Date: 20100708
  Receipt Date: 20100624
  Transmission Date: 20110219
  Serious: Yes (Other)
  Sender: FDA-Public Use
  Company Number: PHHY2010US29916

PATIENT
  Sex: Female

DRUGS (11)
  1. EXTAVIA [Suspect]
     Indication: MULTIPLE SCLEROSIS
     Dosage: 0.0625 MG, QOD
     Route: 058
     Dates: start: 20100502
  2. VITAMIN B12 FOR INJECTION [Concomitant]
     Dosage: UNK,UNK
  3. SEROQUEL [Concomitant]
     Dosage: 50 MG, QHS
  4. TRILEPTAL [Concomitant]
     Dosage: 600 MG, BID
  5. VALIUM [Concomitant]
     Dosage: 10 MG, BID
  6. ADDERALL 10 [Concomitant]
     Dosage: 20 MG, QD
  7. ZANAFLEX [Concomitant]
     Dosage: 6 MG, QHS
  8. LOMOTIL [Concomitant]
     Dosage: UNK,UNK
  9. NEXIUM [Concomitant]
     Dosage: UNK,UNK
  10. PHENERGAN [Concomitant]
     Dosage: UNK,UNK
  11. HYDROCODONE BITARTRATE [Concomitant]
     Dosage: UNK, PM

REACTIONS (8)
  - APHAGIA [None]
  - DYSPHAGIA [None]
  - DYSPNOEA [None]
  - HAEMATOCHEZIA [None]
  - LYMPHADENOPATHY [None]
  - MUCOUS STOOLS [None]
  - PHARYNGEAL OEDEMA [None]
  - WEIGHT DECREASED [None]
